FAERS Safety Report 9649423 (Version 1)
Quarter: 2013Q4

REPORT INFORMATION
  Report Type: Spontaneous
  Country: PL (occurrence: PL)
  Receive Date: 20131028
  Receipt Date: 20131028
  Transmission Date: 20140711
  Serious: Yes (Other)
  Sender: FDA-Public Use
  Company Number: PHHY2013PL118767

PATIENT
  Age: 49 Year
  Sex: Male

DRUGS (1)
  1. VALPROATE [Suspect]
     Indication: NERVOUSNESS

REACTIONS (6)
  - Cardiac flutter [Unknown]
  - Palpitations [Unknown]
  - Abnormal dreams [Unknown]
  - Dyspepsia [Unknown]
  - Hypoaesthesia [Unknown]
  - Drug ineffective [Unknown]
